FAERS Safety Report 4532166-7 (Version None)
Quarter: 2004Q4

REPORT INFORMATION
  Report Type: 
  Country: None (occurrence: None)
  Receive Date: 20041217
  Receipt Date: 20041208
  Transmission Date: 20050328
  Serious: Yes (Hospitalization)
  Sender: FDA-Public Use
  Company Number: HU-2004-036235

PATIENT
  Age: 83 Year
  Sex: Female

DRUGS (1)
  1. ULTRAVIST 300 [Suspect]
     Indication: COMPUTERISED TOMOGRAM
     Dosage: 100 ML, 1 DOSE, INTRAVENOUS
     Route: 042
     Dates: start: 20041130, end: 20041130

REACTIONS (5)
  - CHEST DISCOMFORT [None]
  - CONTRAST MEDIA REACTION [None]
  - COUGH [None]
  - DYSPNOEA [None]
  - LEFT VENTRICULAR FAILURE [None]
